FAERS Safety Report 14607071 (Version 1)
Quarter: 2018Q1

REPORT INFORMATION
  Report Type: Spontaneous
  Country: US (occurrence: US)
  Receive Date: 20180306
  Receipt Date: 20180306
  Transmission Date: 20180509
  Serious: Yes (Other)
  Sender: FDA-Public Use
  Company Number: None

PATIENT
  Age: 21 Year
  Sex: Male
  Weight: 117.93 kg

DRUGS (6)
  1. COGENTIN [Concomitant]
     Active Substance: BENZTROPINE MESYLATE
  2. RESPERDONE [Concomitant]
  3. METERPROLOL [Concomitant]
  4. BENZOTROPINE [Concomitant]
     Active Substance: BENZTROPINE
  5. PROLIXIN [Suspect]
     Active Substance: FLUPHENAZINE HYDROCHLORIDE
     Indication: PARANOIA
     Route: 048
     Dates: start: 19860315, end: 19990315
  6. LISINOPRIL. [Concomitant]
     Active Substance: LISINOPRIL

REACTIONS (1)
  - Dystonia [None]

NARRATIVE: CASE EVENT DATE: 19860315
